FAERS Safety Report 7620407-9 (Version None)
Quarter: 2011Q3

REPORT INFORMATION
  Report Type: 
  Country: None (occurrence: None)
  Receive Date: 20110719
  Receipt Date: 20110713
  Transmission Date: 20111222
  Serious: Yes (Death, Hospitalization)
  Sender: FDA-Public Use
  Company Number: PHHO2007US06181

PATIENT
  Sex: Male
  Weight: 70 kg

DRUGS (1)
  1. ZORTRESS [Suspect]
     Indication: HEART TRANSPLANT
     Dosage: 1.5 MG, BID
     Route: 048
     Dates: start: 20070329

REACTIONS (10)
  - PYREXIA [None]
  - LUNG INFILTRATION [None]
  - LUNG INFECTION PSEUDOMONAL [None]
  - DYSPNOEA [None]
  - PAIN [None]
  - VASCULAR PSEUDOANEURYSM [None]
  - BRONCHOPULMONARY ASPERGILLOSIS [None]
  - LUNG CONSOLIDATION [None]
  - PULMONARY EMBOLISM [None]
  - EMBOLISM VENOUS [None]
